FAERS Safety Report 10683649 (Version 3)
Quarter: 2015Q2

REPORT INFORMATION
  Report Type: Spontaneous
  Country: CO (occurrence: CO)
  Receive Date: 20141230
  Receipt Date: 20150626
  Transmission Date: 20150821
  Serious: Yes (Hospitalization)
  Sender: FDA-Public Use
  Company Number: CO-MERCK-1412COL012787

PATIENT
  Age: 54 Year
  Sex: Male
  Weight: 94 kg

DRUGS (3)
  1. VICTRELIS [Suspect]
     Active Substance: BOCEPREVIR
     Indication: CHRONIC HEPATITIS
     Dosage: STRENGTH AND DAILY DOSE : 2400 (UNSPECIFIED UNITS) , 3 TIMES PER DAY
     Route: 048
     Dates: start: 20141208, end: 20150420
  2. REBETOL [Suspect]
     Active Substance: RIBAVIRIN
     Indication: CHRONIC HEPATITIS
     Dosage: STRENGTH AND TOTAL DAILY DOSE: 1400 (UNSPECIFIED UNITS), DAILY
     Route: 048
     Dates: start: 20141110, end: 20150420
  3. PEGINTRON [Suspect]
     Active Substance: PEGINTERFERON ALFA-2B
     Indication: CHRONIC HEPATITIS
     Dosage: 180 MICROGRAM, QW
     Route: 058
     Dates: start: 20141110, end: 20150420

REACTIONS (6)
  - Depression [Not Recovered/Not Resolved]
  - Anosmia [Recovering/Resolving]
  - Decreased appetite [Recovering/Resolving]
  - Dysgeusia [Recovering/Resolving]
  - Dehydration [Recovering/Resolving]
  - Treatment failure [Unknown]

NARRATIVE: CASE EVENT DATE: 20141124
